FAERS Safety Report 25385742 (Version 1)
Quarter: 2025Q2

REPORT INFORMATION
  Report Type: Spontaneous
  Country: CN (occurrence: CN)
  Receive Date: 20250602
  Receipt Date: 20250602
  Transmission Date: 20250716
  Serious: Yes (Other)
  Sender: PFIZER
  Company Number: CN-PFIZER INC-PV202500063932

PATIENT
  Age: 31 Year
  Sex: Male
  Weight: 120 kg

DRUGS (5)
  1. NIRMATRELVIR\RITONAVIR [Suspect]
     Active Substance: NIRMATRELVIR\RITONAVIR
     Indication: COVID-19 treatment
     Dosage: [NIRMATRELVIR 300 MG]/[RITONAVIR 100 MG]; 2X/DAY
     Dates: start: 20250518, end: 20250520
  2. GLUTATHIONE [Suspect]
     Active Substance: GLUTATHIONE
     Indication: Acute kidney injury
     Dosage: 2.4 G, 1X/DAY
     Route: 041
     Dates: start: 20250514, end: 20250526
  3. ENOXAPARIN SODIUM [Concomitant]
     Active Substance: ENOXAPARIN SODIUM
     Indication: Thrombosis prophylaxis
     Dosage: 6000 IU, 1X/DAY
     Route: 058
     Dates: start: 20250429, end: 20250526
  4. MEROPENEM [Concomitant]
     Active Substance: MEROPENEM
     Indication: Pneumonia
     Dosage: 0.5 G, 2X/DAY
     Route: 041
     Dates: start: 20250515, end: 20250518
  5. DAPTOMYCIN [Concomitant]
     Active Substance: DAPTOMYCIN
     Indication: Staphylococcal sepsis
     Dosage: 0.6 G, ALTERNATE DAY
     Route: 041
     Dates: start: 20250516, end: 20250520

REACTIONS (2)
  - Rash [Recovering/Resolving]
  - Dermatitis allergic [Recovering/Resolving]

NARRATIVE: CASE EVENT DATE: 20250518
